FAERS Safety Report 9828469 (Version 1)
Quarter: 2014Q1

REPORT INFORMATION
  Report Type: Spontaneous
  Country: FR (occurrence: FR)
  Receive Date: 20140117
  Receipt Date: 20140117
  Transmission Date: 20141002
  Serious: Yes (Hospitalization)
  Sender: FDA-Public Use
  Company Number: US-ASTRAZENECA-2014SE03466

PATIENT
  Age: 62 Year
  Sex: Female

DRUGS (5)
  1. KENZEN [Suspect]
     Indication: HYPERTENSION
     Route: 048
     Dates: end: 20120710
  2. LEXOMIL [Suspect]
     Indication: PRODUCT USED FOR UNKNOWN INDICATION
     Route: 048
     Dates: end: 20120710
  3. CARTREX [Suspect]
     Indication: PAIN
     Route: 065
  4. TOPALGIC [Suspect]
     Indication: PAIN
     Route: 048
     Dates: end: 20120710
  5. ANTI-XA FACTOR [Concomitant]
     Route: 048
     Dates: start: 201206

REACTIONS (1)
  - Bicytopenia [Recovered/Resolved]
